FAERS Safety Report 11828708 (Version 1)
Quarter: 2015Q4

REPORT INFORMATION
  Report Type: Spontaneous
  Country: US (occurrence: US)
  Receive Date: 20151211
  Receipt Date: 20151211
  Transmission Date: 20160305
  Serious: No
  Sender: FDA-Public Use
  Company Number: US-BAUSCH-BL-2015-010193

PATIENT
  Age: 72 Year
  Sex: Female
  Weight: 60.38 kg

DRUGS (8)
  1. DESIPRAMINE [Concomitant]
     Active Substance: DESIPRAMINE
     Indication: DEPRESSION
  2. XENAZINE [Suspect]
     Active Substance: TETRABENAZINE
     Route: 048
  3. PROZAC [Concomitant]
     Active Substance: FLUOXETINE HYDROCHLORIDE
     Indication: DEPRESSION
  4. KLONOPIN [Concomitant]
     Active Substance: CLONAZEPAM
     Indication: DEPRESSION
  5. PROZAC [Concomitant]
     Active Substance: FLUOXETINE HYDROCHLORIDE
     Indication: ANXIETY
  6. KLONOPIN [Concomitant]
     Active Substance: CLONAZEPAM
     Indication: ANXIETY
  7. XENAZINE [Suspect]
     Active Substance: TETRABENAZINE
     Indication: MOVEMENT DISORDER
     Route: 048
     Dates: start: 201409
  8. DESIPRAMINE [Concomitant]
     Active Substance: DESIPRAMINE
     Indication: ANXIETY

REACTIONS (6)
  - Muscle spasms [Recovered/Resolved]
  - Lethargy [Not Recovered/Not Resolved]
  - Weight increased [Unknown]
  - Limb discomfort [Not Recovered/Not Resolved]
  - Pain in extremity [Recovering/Resolving]
  - Anxiety [Recovering/Resolving]
